FAERS Safety Report 6568465-7 (Version None)
Quarter: 2010Q1

REPORT INFORMATION
  Report Type: 
  Country: None (occurrence: None)
  Receive Date: 20100203
  Receipt Date: 20100127
  Transmission Date: 20100710
  Serious: Yes (Hospitalization, Other)
  Sender: FDA-Public Use
  Company Number: A0842595A

PATIENT
  Age: 56 Year
  Sex: Female

DRUGS (2)
  1. LAMOTRIGINE [Suspect]
     Indication: BIPOLAR DISORDER
     Dosage: 200MGD PER DAY
     Route: 048
  2. TRILEPTAL [Concomitant]

REACTIONS (4)
  - ANAPHYLACTIC REACTION [None]
  - HYPOAESTHESIA [None]
  - SWELLING FACE [None]
  - SWOLLEN TONGUE [None]
